FAERS Safety Report 5709446-2 (Version None)
Quarter: 2008Q2

REPORT INFORMATION
  Report Type: 
  Country: None (occurrence: None)
  Receive Date: 20080418
  Receipt Date: 20080415
  Transmission Date: 20081010
  Serious: Yes (Life-Threatening)
  Sender: FDA-Public Use
  Company Number: UA-JNJFOC-20080404617

PATIENT
  Age: 4 Year
  Sex: Female

DRUGS (1)
  1. PALIPERIDONE [Suspect]
     Indication: AUTISM
     Route: 048

REACTIONS (3)
  - COMA [None]
  - OVERDOSE [None]
  - RESPIRATORY FAILURE [None]
